FAERS Safety Report 10101641 (Version 1)
Quarter: 2014Q2

REPORT INFORMATION
  Report Type: Spontaneous
  Country: TN (occurrence: None)
  Receive Date: 20140422
  Receipt Date: 20140422
  Transmission Date: 20141212
  Serious: Yes (Other)
  Sender: FDA-Public Use
  Company Number: 2014P1003147

PATIENT
  Age: 41 Year
  Sex: Female

DRUGS (4)
  1. ETHAMBUTOL [Suspect]
     Indication: TUBERCULOSIS
     Dosage: 3 TABLETS
  2. ISONIAZID [Concomitant]
  3. RIFAMPICIN [Concomitant]
  4. PYRAZINAMIDE [Concomitant]

REACTIONS (11)
  - Rash [None]
  - Pruritus [None]
  - Face oedema [None]
  - Oral mucosa erosion [None]
  - Pyrexia [None]
  - Alanine aminotransferase increased [None]
  - Aspartate aminotransferase increased [None]
  - Blood lactate dehydrogenase increased [None]
  - Hypersensitivity [None]
  - Pruritus generalised [None]
  - Drug reaction with eosinophilia and systemic symptoms [None]
